FAERS Safety Report 7088395-4 (Version None)
Quarter: 2010Q4

REPORT INFORMATION
  Report Type: 
  Country: None (occurrence: None)
  Receive Date: 20101029
  Receipt Date: 20101013
  Transmission Date: 20110411
  Serious: Yes (Other)
  Sender: FDA-Public Use
  Company Number: ACO_02773_2010

PATIENT

DRUGS (1)
  1. ZANAFLEX [Suspect]
     Indication: PRODUCT USED FOR UNKNOWN INDICATION
     Dosage: (DF)

REACTIONS (5)
  - AGITATION [None]
  - AKATHISIA [None]
  - CONDITION AGGRAVATED [None]
  - IRRITABILITY [None]
  - RESTLESSNESS [None]
